FAERS Safety Report 16521954 (Version 1)
Quarter: 2019Q3

REPORT INFORMATION
  Report Type: Spontaneous
  Country: NL (occurrence: NL)
  Receive Date: 20190703
  Receipt Date: 20190703
  Transmission Date: 20191004
  Serious: Yes (Other)
  Sender: FDA-Public Use
  Company Number: NL-EMD SERONO-9101630

PATIENT
  Sex: Female

DRUGS (3)
  1. PREGNYL [Concomitant]
     Active Substance: CHORIOGONADOTROPIN ALFA
     Indication: ASSISTED REPRODUCTIVE TECHNOLOGY
  2. GONAL-F [Suspect]
     Active Substance: FOLLITROPIN
     Indication: ASSISTED REPRODUCTIVE TECHNOLOGY
     Dosage: UNSPECIFIED DOSE
  3. GONAL-F [Suspect]
     Active Substance: FOLLITROPIN
     Dosage: DOSE DECREASED

REACTIONS (4)
  - Emotional disorder [Unknown]
  - Irritability [Unknown]
  - Ovarian hyperstimulation syndrome [Unknown]
  - Feeling abnormal [Unknown]
